FAERS Safety Report 9351871 (Version 1)
Quarter: 2013Q2

REPORT INFORMATION
  Report Type: Spontaneous
  Country: US (occurrence: US)
  Receive Date: 20130617
  Receipt Date: 20130617
  Transmission Date: 20140414
  Serious: Yes (Hospitalization)
  Sender: FDA-Public Use
  Company Number: US-GLAXOSMITHKLINE-A0798102A

PATIENT
  Age: 42 Year
  Sex: Female
  Weight: 111.4 kg

DRUGS (2)
  1. AVANDIA [Suspect]
     Indication: DIABETES MELLITUS
     Dosage: 4MG TWICE PER DAY
     Route: 048
  2. AVANDAMET [Suspect]
     Indication: DIABETES MELLITUS
     Route: 048

REACTIONS (9)
  - Cardiac failure [Not Recovered/Not Resolved]
  - Macular oedema [Unknown]
  - Anaemia [Unknown]
  - Cardiac failure congestive [Unknown]
  - Multiple fractures [Unknown]
  - Retinal detachment [Unknown]
  - Blindness [Unknown]
  - Ill-defined disorder [Unknown]
  - Diabetic retinopathy [Unknown]
